FAERS Safety Report 6748584-2 (Version None)
Quarter: 2010Q2

REPORT INFORMATION
  Report Type: 
  Country: None (occurrence: None)
  Receive Date: 20100601
  Receipt Date: 20100514
  Transmission Date: 20101027
  Serious: Yes (Life-Threatening, Hospitalization, Other)
  Sender: FDA-Public Use
  Company Number: US-BAYER-200937154NA

PATIENT
  Age: 34 Year
  Sex: Female
  Weight: 107 kg

DRUGS (5)
  1. YASMIN [Suspect]
     Indication: PREMENSTRUAL SYNDROME
     Route: 048
     Dates: start: 20060101, end: 20071001
  2. LEVOTHYROXINE SODIUM [Concomitant]
  3. VITAMIN C [Concomitant]
  4. MIGRAINE MEDICATION (NOS) [Concomitant]
  5. CIPRO [Concomitant]

REACTIONS (13)
  - DIZZINESS [None]
  - DYSPNOEA [None]
  - EMBOLISM VENOUS [None]
  - HEPATIC ADENOMA [None]
  - LOSS OF CONSCIOUSNESS [None]
  - MUSCULOSKELETAL PAIN [None]
  - PAIN IN EXTREMITY [None]
  - PELVIC VENOUS THROMBOSIS [None]
  - PNEUMONIA [None]
  - PULMONARY EMBOLISM [None]
  - PULMONARY INFARCTION [None]
  - TACHYCARDIA [None]
  - URINARY TRACT INFECTION [None]
